FAERS Safety Report 8255632-X (Version None)
Quarter: 2012Q2

REPORT INFORMATION
  Report Type: 
  Country: None (occurrence: None)
  Receive Date: 20120403
  Receipt Date: 20120403
  Transmission Date: 20120825
  Serious: No
  Sender: FDA-Public Use
  Company Number: None

PATIENT
  Age: 49 Year
  Sex: Female

DRUGS (1)
  1. REBIF [Suspect]
     Indication: MULTIPLE SCLEROSIS
     Dosage: 44MCG
     Route: 058
     Dates: start: 20110803, end: 20120215

REACTIONS (3)
  - TINNITUS [None]
  - ASTHENIA [None]
  - WALKING AID USER [None]
